FAERS Safety Report 7851693-8 (Version None)
Quarter: 2011Q4

REPORT INFORMATION
  Report Type: 
  Country: None (occurrence: None)
  Receive Date: 20111026
  Receipt Date: 20111019
  Transmission Date: 20120403
  Serious: Yes (Other)
  Sender: FDA-Public Use
  Company Number: PHHY2011CL93414

PATIENT
  Age: 82 Year
  Sex: Female

DRUGS (4)
  1. EXFORGE [Suspect]
     Indication: HYPERTENSION
     Dosage: HALF TABLET (320/10 MG) PER DAY
     Route: 048
  2. TENSOLIV [Concomitant]
     Dosage: UNK
  3. CLONAZEPAM [Concomitant]
     Dosage: UNK
  4. ALOE VERA [Concomitant]

REACTIONS (2)
  - PNEUMONITIS [None]
  - BLOOD PRESSURE INCREASED [None]
